FAERS Safety Report 5019958-5 (Version None)
Quarter: 2006Q2

REPORT INFORMATION
  Report Type: 
  Country: None (occurrence: None)
  Receive Date: 20060601
  Receipt Date: 20060529
  Transmission Date: 20061013
  Serious: Yes (Hospitalization)
  Sender: FDA-Public Use
  Company Number: HQWYE481223MAR06

PATIENT
  Age: 57 Year
  Sex: Female

DRUGS (1)
  1. CEFIXIME [Suspect]
     Indication: URINARY TRACT INFECTION
     Dosage: 400 MG DAILY ORAL
     Route: 048
     Dates: start: 20050101, end: 20050101

REACTIONS (6)
  - ANGIONEUROTIC OEDEMA [None]
  - COLITIS PSEUDOMEMBRANOUS [None]
  - ORTHOSTATIC HYPOTENSION [None]
  - SUFFOCATION FEELING [None]
  - SWELLING [None]
  - WEIGHT DECREASED [None]
